FAERS Safety Report 23343077 (Version 1)
Quarter: 2023Q4

REPORT INFORMATION
  Report Type: Spontaneous
  Country: US (occurrence: US)
  Receive Date: 20231227
  Receipt Date: 20231227
  Transmission Date: 20240110
  Serious: No
  Sender: FDA-Public Use
  Company Number: US-SANDOZ-SDZ2023US072524

PATIENT
  Sex: Female

DRUGS (1)
  1. LESCOL XL [Suspect]
     Active Substance: FLUVASTATIN SODIUM
     Indication: Product used for unknown indication
     Dosage: 80 MG, QD
     Route: 048

REACTIONS (1)
  - COVID-19 [Unknown]
